FAERS Safety Report 7251765-5 (Version None)
Quarter: 2011Q1

REPORT INFORMATION
  Report Type: 
  Country: None (occurrence: None)
  Receive Date: 20110128
  Receipt Date: 20100106
  Transmission Date: 20110831
  Serious: No
  Sender: FDA-Public Use
  Company Number: US-ABBOTT-09P-163-0613079-00

PATIENT
  Sex: Female

DRUGS (3)
  1. TWO UNKNOWN BLOOD PRESSURE MEDICATION [Concomitant]
     Indication: PRODUCT USED FOR UNKNOWN INDICATION
  2. HUMIRA [Suspect]
     Indication: CROHN'S DISEASE
     Dates: start: 20091026
  3. UNKNOWN IH [Concomitant]
     Indication: PRODUCT USED FOR UNKNOWN INDICATION

REACTIONS (8)
  - PYREXIA [None]
  - ASTHMA [None]
  - DIZZINESS [None]
  - NASOPHARYNGITIS [None]
  - RHINORRHOEA [None]
  - CHILLS [None]
  - HEADACHE [None]
  - MALAISE [None]
